FAERS Safety Report 7828939-5 (Version None)
Quarter: 2011Q4

REPORT INFORMATION
  Report Type: 
  Country: None (occurrence: None)
  Receive Date: 20111020
  Receipt Date: 20111007
  Transmission Date: 20120403
  Serious: Yes (Hospitalization)
  Sender: FDA-Public Use
  Company Number: US-ELI_LILLY_AND_COMPANY-US201003007178

PATIENT
  Sex: Female

DRUGS (6)
  1. VITAMIN D [Concomitant]
     Indication: VITAMIN D DECREASED
     Dosage: 20000 U, DAILY (1/D)
  2. VITAMIN D [Concomitant]
     Dosage: 50000 U, 2/W
  3. FORTEO [Suspect]
     Dosage: 20 UG, DAILY (1/D)
     Route: 058
  4. FORTEO [Suspect]
     Indication: OSTEOPOROSIS
     Dosage: 20 UG, DAILY (1/D)
     Route: 058
     Dates: start: 20100213
  5. FORTEO [Suspect]
     Dosage: 20 UG, QD
     Route: 058
  6. FORTEO [Suspect]
     Dosage: 20 UG, QD
     Route: 058

REACTIONS (6)
  - WEIGHT INCREASED [None]
  - DRUG DOSE OMISSION [None]
  - VITAMIN D DECREASED [None]
  - INCREASED APPETITE [None]
  - BRONCHITIS VIRAL [None]
  - MEDICAL DEVICE REMOVAL [None]
